FAERS Safety Report 5886170-7 (Version None)
Quarter: 2008Q3

REPORT INFORMATION
  Report Type: 
  Country: None (occurrence: None)
  Receive Date: 20080917
  Receipt Date: 20080909
  Transmission Date: 20090109
  Serious: Yes (Other)
  Sender: FDA-Public Use
  Company Number: US-BAYER-200830680NA

PATIENT
  Sex: Male

DRUGS (1)
  1. AVELOX [Suspect]
     Indication: UPPER RESPIRATORY TRACT INFECTION

REACTIONS (7)
  - BLOOD PRESSURE INCREASED [None]
  - GENERALISED ERYTHEMA [None]
  - HYPERSENSITIVITY [None]
  - HYPOAESTHESIA ORAL [None]
  - OCULAR HYPERAEMIA [None]
  - PRURITUS GENERALISED [None]
  - RASH GENERALISED [None]
